FAERS Safety Report 9167419 (Version 1)
Quarter: 2013Q1

REPORT INFORMATION
  Report Type: Spontaneous
  Country: US (occurrence: None)
  Receive Date: 20130301
  Receipt Date: 20130301
  Transmission Date: 20140127
  Serious: Yes (Other)
  Sender: FDA-Public Use
  Company Number: IMP_06571_2013

PATIENT
  Age: 65 Year
  Sex: Female

DRUGS (1)
  1. DOXYCYCLINE [Suspect]
     Indication: ROSACEA
     Dosage: DF

REACTIONS (5)
  - Toxicity to various agents [None]
  - Vascular injury [None]
  - Gastrointestinal mucosal necrosis [None]
  - Abdominal distension [None]
  - Gastrooesophageal reflux disease [None]
